FAERS Safety Report 10892006 (Version 2)
Quarter: 2015Q2

REPORT INFORMATION
  Report Type: Spontaneous
  Country: CH (occurrence: CH)
  Receive Date: 20150306
  Receipt Date: 20150423
  Transmission Date: 20150821
  Serious: Yes (Other)
  Sender: FDA-Public Use
  Company Number: CH-GALDERMA-CH15000777

PATIENT
  Age: 31 Year
  Sex: Female
  Weight: 65 kg

DRUGS (2)
  1. ORACEA [Suspect]
     Active Substance: DOXYCYCLINE
     Indication: DERMATITIS
     Route: 048
     Dates: start: 20141031, end: 20141110
  2. MARCOUMAR [Concomitant]
     Active Substance: PHENPROCOUMON
     Route: 048

REACTIONS (2)
  - Chronic cutaneous lupus erythematosus [Recovered/Resolved]
  - Product use issue [Recovered/Resolved]

NARRATIVE: CASE EVENT DATE: 20141031
